FAERS Safety Report 7099514-8 (Version None)
Quarter: 2010Q4

REPORT INFORMATION
  Report Type: 
  Country: None (occurrence: None)
  Receive Date: 20101112
  Receipt Date: 20101102
  Transmission Date: 20110411
  Serious: Yes (Death, Other)
  Sender: FDA-Public Use
  Company Number: JP-ROCHE-719883

PATIENT
  Sex: Male
  Weight: 58 kg

DRUGS (9)
  1. AVASTIN [Suspect]
     Indication: LUNG ADENOCARCINOMA
     Dosage: ONLY ONCE.
     Route: 041
     Dates: start: 20100705, end: 20100705
  2. TAXOL [Concomitant]
     Route: 041
     Dates: start: 20100705, end: 20100705
  3. MAGNESIUM OXIDE [Concomitant]
     Route: 048
     Dates: start: 20100309
  4. MUCOSTA [Concomitant]
     Route: 048
     Dates: start: 20100326
  5. PREDNISOLONE [Concomitant]
     Route: 048
     Dates: start: 20100616
  6. KLARICID [Concomitant]
     Route: 048
     Dates: start: 20100616
  7. RAMELTEON [Concomitant]
     Route: 041
     Dates: start: 20100705, end: 20100705
  8. DECADRON [Concomitant]
     Route: 041
     Dates: start: 20100705, end: 20100705
  9. GASTER [Concomitant]
     Route: 041
     Dates: start: 20100705, end: 20100705

REACTIONS (11)
  - ABDOMINAL PAIN [None]
  - BACK PAIN [None]
  - BLOOD PRESSURE DECREASED [None]
  - CARDIAC ARREST [None]
  - CEREBRAL HAEMORRHAGE [None]
  - CHEST PAIN [None]
  - DEPRESSED LEVEL OF CONSCIOUSNESS [None]
  - DISEASE PROGRESSION [None]
  - MUSCLE SPASMS [None]
  - PAIN [None]
  - TACHYCARDIA [None]
